FAERS Safety Report 17471596 (Version 1)
Quarter: 2020Q1

REPORT INFORMATION
  Report Type: Spontaneous
  Country: ES (occurrence: ES)
  Receive Date: 20200228
  Receipt Date: 20200228
  Transmission Date: 20200409
  Serious: Yes (Hospitalization)
  Sender: FDA-Public Use
  Company Number: ES-TEVA-2020-ES-1192637

PATIENT
  Age: 90 Year
  Sex: Female

DRUGS (4)
  1. FUROSEMIDA 40 MG COMPRIMIDO [Interacting]
     Active Substance: FUROSEMIDE
     Route: 048
     Dates: start: 20191126, end: 20200108
  2. ENALAPRIL 5 MG COMPRIMIDO [Suspect]
     Active Substance: ENALAPRIL
     Dosage: 5 MILLIGRAM
     Route: 048
     Dates: start: 20191126
  3. ESPIRONOLACTONA (326A) [Interacting]
     Active Substance: SPIRONOLACTONE
     Dosage: 25 MILLIGRAM
     Route: 048
     Dates: start: 20191126, end: 20200108
  4. ACETAZOLAMIDA (EDEMOX) [Interacting]
     Active Substance: ACETAZOLAMIDE
     Indication: OEDEMA
     Dosage: 250 MG 2-0-0 L-M-V
     Route: 048
     Dates: start: 20191212, end: 20200108

REACTIONS (3)
  - Hyperkalaemia [Recovered/Resolved]
  - Hyponatraemia [Recovered/Resolved]
  - Drug interaction [Unknown]

NARRATIVE: CASE EVENT DATE: 20200108
